APPROVED DRUG PRODUCT: LIPIODOL
Active Ingredient: ETHIODIZED OIL
Strength: EQ 4.8GM IODINE/10ML (EQ 480MG IODINE/ML)
Dosage Form/Route: OIL;INTRALYMPHATIC, INTRAUTERINE
Application: N009190 | Product #001
Applicant: GUERBET LLC
Approved: Approved Prior to Jan 1, 1982 | RLD: Yes | RS: Yes | Type: RX